FAERS Safety Report 5474509-6 (Version None)
Quarter: 2007Q3

REPORT INFORMATION
  Report Type: 
  Country: None (occurrence: None)
  Receive Date: 20070928
  Receipt Date: 20070928
  Transmission Date: 20080115
  Serious: Yes (Hospitalization)
  Sender: FDA-Public Use
  Company Number: None

PATIENT
  Sex: Female
  Weight: 91.2 kg

DRUGS (2)
  1. BUSULFAN(750) [Suspect]
     Dosage: 864 MG
     Dates: start: 20070427, end: 20070823
  2. ETOPOSIDE [Suspect]
     Dosage: 4038 MG
     Dates: end: 20070824

REACTIONS (7)
  - ATELECTASIS [None]
  - FEBRILE NEUTROPENIA [None]
  - HAEMOGLOBIN DECREASED [None]
  - MUCOSAL INFLAMMATION [None]
  - PLATELET COUNT DECREASED [None]
  - WHITE BLOOD CELL COUNT DECREASED [None]
  - WHITE BLOOD CELL COUNT INCREASED [None]
